FAERS Safety Report 23985729 (Version 1)
Quarter: 2024Q2

REPORT INFORMATION
  Report Type: Spontaneous
  Country: CN (occurrence: CN)
  Receive Date: 20240618
  Receipt Date: 20240618
  Transmission Date: 20240715
  Serious: Yes (Hospitalization)
  Sender: FDA-Public Use
  Company Number: CN-TAKEDA-2024TUS058286

PATIENT
  Age: 41 Year
  Sex: Female

DRUGS (3)
  1. BRENTUXIMAB VEDOTIN [Suspect]
     Active Substance: BRENTUXIMAB VEDOTIN
     Indication: T-cell lymphoma
     Dosage: 50 MILLIGRAM, QD
     Route: 041
     Dates: start: 20240301, end: 20240301
  2. ETOPOSIDE [Suspect]
     Active Substance: ETOPOSIDE
     Indication: T-cell lymphoma
     Dosage: 150 MILLIGRAM
     Route: 041
     Dates: start: 20240301
  3. ETOPOSIDE [Suspect]
     Active Substance: ETOPOSIDE
     Dosage: 0.4 GRAM, QD
     Route: 041
     Dates: start: 20240308, end: 20240410

REACTIONS (1)
  - Myelosuppression [Recovering/Resolving]

NARRATIVE: CASE EVENT DATE: 20240317
